FAERS Safety Report 10956080 (Version 1)
Quarter: 2015Q1

REPORT INFORMATION
  Report Type: Report from Study
  Country: US (occurrence: None)
  Receive Date: 20150324
  Receipt Date: 20150324
  Transmission Date: 20150721
  Serious: Yes (Disabling)
  Sender: FDA-Public Use
  Company Number: 2014SA009189

PATIENT
  Age: 59 Year
  Sex: Female

DRUGS (1)
  1. AUBAGIO [Suspect]
     Active Substance: TERIFLUNOMIDE
     Indication: MULTIPLE SCLEROSIS
     Route: 048
     Dates: start: 20131223

REACTIONS (5)
  - Pain [None]
  - Impaired work ability [None]
  - Pneumonia [None]
  - Influenza like illness [None]
  - Bronchitis [None]
